FAERS Safety Report 20815441 (Version 6)
Quarter: 2022Q2

REPORT INFORMATION
  Report Type: Spontaneous
  Country: US (occurrence: US)
  Receive Date: 20220511
  Receipt Date: 20220628
  Transmission Date: 20220721
  Serious: No
  Sender: FDA-Public Use
  Company Number: US-PFIZER INC-202200636004

PATIENT
  Age: 72 Year
  Sex: Female

DRUGS (8)
  1. IBRANCE [Suspect]
     Active Substance: PALBOCICLIB
     Dosage: UNK
     Dates: start: 202112, end: 202112
  2. IBRANCE [Suspect]
     Active Substance: PALBOCICLIB
     Dosage: UNK
     Dates: end: 202202
  3. IBRANCE [Suspect]
     Active Substance: PALBOCICLIB
     Dosage: UNK
     Dates: end: 202203
  4. IBRANCE [Suspect]
     Active Substance: PALBOCICLIB
     Dosage: UNK
     Dates: end: 202205
  5. IBRANCE [Suspect]
     Active Substance: PALBOCICLIB
     Dosage: 125 MG
     Dates: start: 20220513
  6. ASPIRIN [Concomitant]
     Active Substance: ASPIRIN
     Dosage: UNK
  7. ANASTROZOLE [Concomitant]
     Active Substance: ANASTROZOLE
     Dosage: UNK
  8. BUSPIRONE [Concomitant]
     Active Substance: BUSPIRONE HYDROCHLORIDE
     Dosage: UNK

REACTIONS (25)
  - White blood cell count decreased [Unknown]
  - Erythema [Unknown]
  - Oropharyngeal pain [Unknown]
  - Hypertension [Unknown]
  - Arthralgia [Unknown]
  - Fatigue [Unknown]
  - Headache [Unknown]
  - Blood test abnormal [Unknown]
  - Contusion [Unknown]
  - Contusion [Unknown]
  - Pruritus [Unknown]
  - Joint swelling [Unknown]
  - Erythema [Unknown]
  - Peripheral swelling [Unknown]
  - Hypersensitivity [Unknown]
  - Fatigue [Unknown]
  - Loss of personal independence in daily activities [Unknown]
  - Pain [Unknown]
  - Anxiety [Unknown]
  - Alopecia [Unknown]
  - Dry skin [Unknown]
  - Pain in extremity [Unknown]
  - Nasal congestion [Unknown]
  - Rhinorrhoea [Unknown]
  - Skin swelling [Unknown]
